FAERS Safety Report 8496171-0 (Version None)
Quarter: 2012Q3

REPORT INFORMATION
  Report Type: 
  Country: None (occurrence: None)
  Receive Date: 20120709
  Receipt Date: 20120626
  Transmission Date: 20120928
  Serious: Yes (Hospitalization)
  Sender: FDA-Public Use
  Company Number: GB-TEVA-345108ISR

PATIENT
  Age: 81 Year
  Sex: Female

DRUGS (1)
  1. TRAZODONE HCL [Suspect]
     Route: 048
     Dates: start: 20090619, end: 20120614

REACTIONS (2)
  - HYPONATRAEMIA [None]
  - ABDOMINAL PAIN [None]
